FAERS Safety Report 4709346-0 (Version None)
Quarter: 2005Q3

REPORT INFORMATION
  Report Type: 
  Country: None (occurrence: None)
  Receive Date: 20050706
  Receipt Date: 20050623
  Transmission Date: 20060218
  Serious: Yes (Death)
  Sender: FDA-Public Use
  Company Number: 2005JP001136

PATIENT
  Age: 51 Year
  Sex: Female
  Weight: 65 kg

DRUGS (14)
  1. PROGRAF [Suspect]
     Indication: BONE MARROW TRANSPLANT
     Dosage: 0.80 MG, BID, ORAL
     Route: 048
     Dates: start: 20040723
  2. PREDNISOLONE [Concomitant]
  3. DENOSINE ^TANABE^ (GANCICLOVIR) [Concomitant]
  4. DIFLUCAN (FLUCONAZOLE) CAPSULE [Concomitant]
  5. BAKTAR (SULFAMETHOXAZOLE, TRIMETHOPRIM) TABLET [Concomitant]
  6. GRAN (FILGRASTIM) INJECTION [Concomitant]
  7. FUNGUARD (MICAFUNGIN) INJECTION [Concomitant]
  8. ZOVIRAX [Concomitant]
  9. ITRIZOLE (ITRACONAZOLE) TABLET [Concomitant]
  10. MAXIPIME [Concomitant]
  11. OMEGACIN INJECTION [Concomitant]
  12. LEPETAN (BUPRENORPHIEN HYDROCHLORIDE) [Concomitant]
  13. TAKEPRON OD (LANSOPRAZOLE) TABLET [Concomitant]
  14. MUCOSTA (REBAMIPIDE) TABLET [Concomitant]

REACTIONS (14)
  - ABDOMINAL PAIN [None]
  - ADENOVIRAL HEPATITIS [None]
  - BLOOD PRESSURE DECREASED [None]
  - COAGULOPATHY [None]
  - CONDITION AGGRAVATED [None]
  - DEPRESSED LEVEL OF CONSCIOUSNESS [None]
  - EPSTEIN-BARR VIRUS TEST POSITIVE [None]
  - GRAFT VERSUS HOST DISEASE [None]
  - HAEMODIALYSIS [None]
  - HEPATIC FAILURE [None]
  - HEPATIC NECROSIS [None]
  - HEPATITIS FULMINANT [None]
  - HYPOXIA [None]
  - LUNG INFILTRATION [None]
